FAERS Safety Report 9764509 (Version 1)
Quarter: 2013Q4

REPORT INFORMATION
  Report Type: Spontaneous
  Country: CO (occurrence: CO)
  Receive Date: 20131217
  Receipt Date: 20131217
  Transmission Date: 20140711
  Serious: Yes (Other)
  Sender: FDA-Public Use
  Company Number: CO-AMGEN-COLSP2013088155

PATIENT
  Age: 54 Year
  Sex: Female

DRUGS (3)
  1. ENBREL [Suspect]
     Indication: RHEUMATOID ARTHRITIS
     Dosage: 50 MG, WEEKLY
     Route: 058
     Dates: start: 201205
  2. METHOTREXATE [Concomitant]
     Indication: RHEUMATOID ARTHRITIS
     Dosage: 50 MG, WEEKLY
     Route: 048
     Dates: start: 1997
  3. CALCIUM CARBONATE W/VITAMIN D NOS [Concomitant]
     Indication: MINERAL SUPPLEMENTATION
     Dosage: 600 MG, DAILY
     Route: 048
     Dates: start: 2011

REACTIONS (1)
  - Diabetes mellitus [Not Recovered/Not Resolved]
